FAERS Safety Report 11475661 (Version 3)
Quarter: 2015Q3

REPORT INFORMATION
  Report Type: Report from Study
  Country: JP (occurrence: JP)
  Receive Date: 20150909
  Receipt Date: 20150921
  Transmission Date: 20151125
  Serious: Yes (Hospitalization)
  Sender: FDA-Public Use
  Company Number: JP-ROCHE-1627551

PATIENT
  Age: 56 Year
  Sex: Female
  Weight: 45.5 kg

DRUGS (5)
  1. RINDERON VG [Concomitant]
     Active Substance: BETAMETHASONE VALERATE\GENTAMICIN SULFATE
     Indication: PROPHYLAXIS
     Dosage: PROPER QUANTITY SINGLE USE
     Route: 061
     Dates: start: 20150819
  2. TRASTUZUMAB EMTANSINE [Suspect]
     Active Substance: ADO-TRASTUZUMAB EMTANSINE
     Indication: HER-2 POSITIVE BREAST CANCER
     Route: 041
     Dates: start: 20150819
  3. FEMARA [Concomitant]
     Active Substance: LETROZOLE
     Indication: HORMONE THERAPY
     Route: 048
     Dates: start: 20150819
  4. HIRUDOID OINTMENT [Concomitant]
     Indication: PROPHYLAXIS
     Dosage: PROPER QUANTITY SINGLE USE
     Route: 061
     Dates: start: 20150819
  5. PERTUZUMAB [Suspect]
     Active Substance: PERTUZUMAB
     Indication: HER-2 POSITIVE BREAST CANCER
     Route: 041
     Dates: start: 20150819

REACTIONS (1)
  - Platelet count decreased [Recovered/Resolved]

NARRATIVE: CASE EVENT DATE: 20150826
